FAERS Safety Report 23224929 (Version 1)
Quarter: 2023Q4

REPORT INFORMATION
  Report Type: Spontaneous
  Country: US (occurrence: US)
  Receive Date: 20231124
  Receipt Date: 20231124
  Transmission Date: 20240109
  Serious: Yes (Other)
  Sender: FDA-Public Use
  Company Number: US-AMGEN-USASP2023206278

PATIENT
  Age: 59 Year
  Sex: Female

DRUGS (6)
  1. REPATHA [Suspect]
     Active Substance: EVOLOCUMAB
     Indication: Product used for unknown indication
     Dosage: 140 MILLIGRAM, Q2WK
     Route: 065
     Dates: start: 202108, end: 20231004
  2. LEVOTHYROXINE [Concomitant]
     Active Substance: LEVOTHYROXINE
     Indication: Thyroid disorder
     Dosage: 50 MICROGRAM
     Route: 065
  3. PREMARIN [Concomitant]
     Active Substance: ESTROGENS, CONJUGATED
     Dosage: 0.625 MILLIGRAM, QD
     Route: 065
  4. XANAX [Concomitant]
     Active Substance: ALPRAZOLAM
     Dosage: UNK, AS NECESSARY
     Route: 065
  5. VITAMINS [Concomitant]
     Active Substance: VITAMINS
     Dosage: UNK
     Route: 065
  6. CALCIUM [Concomitant]
     Active Substance: CALCIUM
     Dosage: UNK

REACTIONS (13)
  - Cataract [Not Recovered/Not Resolved]
  - Injection site irritation [Unknown]
  - Injection site rash [Unknown]
  - Injection site erythema [Unknown]
  - Ear congestion [Unknown]
  - Head discomfort [Unknown]
  - Headache [Unknown]
  - Oropharyngeal pain [Unknown]
  - Blood triglycerides increased [Unknown]
  - Myalgia [Unknown]
  - Back pain [Unknown]
  - Bladder pain [Unknown]
  - Asthenia [Unknown]
